FAERS Safety Report 6164869-5 (Version None)
Quarter: 2009Q2

REPORT INFORMATION
  Report Type: 
  Country: None (occurrence: None)
  Receive Date: 20090423
  Receipt Date: 20090414
  Transmission Date: 20091009
  Serious: Yes (Hospitalization, Other)
  Sender: FDA-Public Use
  Company Number: US-AMGEN-QUU341442

PATIENT
  Sex: Female
  Weight: 65.8 kg

DRUGS (3)
  1. ENBREL [Suspect]
     Indication: RHEUMATOID ARTHRITIS
     Route: 058
     Dates: start: 20021108, end: 20090329
  2. LEVOTHYROXINE SODIUM [Concomitant]
  3. ESTROGENS [Concomitant]

REACTIONS (6)
  - DIARRHOEA [None]
  - HEPATIC CYST [None]
  - INGUINAL HERNIA [None]
  - PERNICIOUS ANAEMIA [None]
  - PLEUROPERICARDITIS [None]
  - THYROID DISORDER [None]
